FAERS Safety Report 11117767 (Version 1)
Quarter: 2015Q2

REPORT INFORMATION
  Report Type: Report from Study
  Country: BR (occurrence: BR)
  Receive Date: 20150518
  Receipt Date: 20150518
  Transmission Date: 20150821
  Serious: Yes (Other)
  Sender: FDA-Public Use
  Company Number: BR-AMGEN-BRACT2015047254

PATIENT
  Age: 76 Year
  Sex: Female

DRUGS (6)
  1. ALOIS [Concomitant]
     Active Substance: MEMANTINE
     Indication: DEPRESSION
     Dosage: 1 DF, QD
     Route: 048
     Dates: start: 201005
  2. PROLIA [Suspect]
     Active Substance: DENOSUMAB
     Indication: OSTEOPOROSIS
     Dosage: UNK
     Route: 065
  3. CYMBALTA [Concomitant]
     Active Substance: DULOXETINE HYDROCHLORIDE
     Indication: DEPRESSION
     Dosage: 1 DF, QD
     Route: 048
     Dates: start: 201205
  4. GEROVITAL H3 [Concomitant]
     Indication: MEMORY IMPAIRMENT
     Dosage: 1 DF, QD
     Route: 048
  5. OSCAL                              /07357001/ [Concomitant]
     Dosage: UNK
     Route: 048
  6. VITAMIN D                          /00107901/ [Concomitant]
     Active Substance: ERGOCALCIFEROL
     Indication: CALCIUM DEFICIENCY
     Dosage: 2 DF, QD
     Route: 048
     Dates: start: 201312

REACTIONS (2)
  - Osteitis [Not Recovered/Not Resolved]
  - Osteopenia [Unknown]

NARRATIVE: CASE EVENT DATE: 201503
